FAERS Safety Report 4330210-3 (Version None)
Quarter: 2004Q2

REPORT INFORMATION
  Report Type: 
  Country: None (occurrence: None)
  Receive Date: 20040401
  Receipt Date: 20040318
  Transmission Date: 20050107
  Serious: Yes (Hospitalization)
  Sender: FDA-Public Use
  Company Number: HQWYE006319MAR04

PATIENT
  Age: 19 Year
  Sex: Female
  Weight: 72 kg

DRUGS (9)
  1. RAPAMUNE [Suspect]
     Indication: PROPHYLAXIS AGAINST TRANSPLANT REJECTION
     Dosage: SEE IMAGE
     Route: 048
     Dates: start: 20030225, end: 20040115
  2. RAPAMUNE [Suspect]
     Indication: PROPHYLAXIS AGAINST TRANSPLANT REJECTION
     Dosage: SEE IMAGE
     Route: 048
     Dates: start: 20040116
  3. TACROLIMUS (TACROLIMUS) [Suspect]
     Indication: PROPHYLAXIS AGAINST TRANSPLANT REJECTION
     Dosage: 6 MG 1 X PER 1 DAY, ORAL
     Route: 048
     Dates: start: 20030215
  4. IMMUNOSUPPRESSIVE AGENTS (IMMUNOSUPPRESSIVE AGENTS) [Concomitant]
  5. METOPROLOL (METOPROLOL) [Concomitant]
  6. HYDROCHLOROTHIAZIDE [Concomitant]
  7. ORTHO TR-CYCLEN (ETHINYLESTRADIOL/NORGESTIMATE) [Concomitant]
  8. BACTRIM [Concomitant]
  9. LIPITTOR (ATORVASTATIN) [Concomitant]

REACTIONS (2)
  - DRUG TOXICITY [None]
  - RENAL TUBULAR DISORDER [None]
